FAERS Safety Report 16363502 (Version 1)
Quarter: 2019Q2

REPORT INFORMATION
  Report Type: Report from Study
  Country: ES (occurrence: ES)
  Receive Date: 20190528
  Receipt Date: 20190528
  Transmission Date: 20190711
  Serious: Yes (Other)
  Sender: FDA-Public Use
  Company Number: ES-MYLANLABS-2019M1048599

PATIENT
  Age: 91 Year
  Sex: Male

DRUGS (3)
  1. ALOPURINOL [Suspect]
     Active Substance: ALLOPURINOL
     Indication: PRODUCT USED FOR UNKNOWN INDICATION
     Dosage: 300 MILLIGRAM, QD, 300 MG DIA
     Route: 048
     Dates: start: 20120101
  2. ENALAPRIL [Suspect]
     Active Substance: ENALAPRIL
     Indication: PRODUCT USED FOR UNKNOWN INDICATION
     Dosage: 20 MG DIA
     Dates: start: 20150101
  3. SPIRIVA [Suspect]
     Active Substance: TIOTROPIUM BROMIDE MONOHYDRATE
     Indication: PRODUCT USED FOR UNKNOWN INDICATION
     Dosage: 1 INH DIA
     Route: 055
     Dates: start: 20150101

REACTIONS (1)
  - Hyperamylasaemia [Recovered/Resolved]

NARRATIVE: CASE EVENT DATE: 20180311
